FAERS Safety Report 8246736-6 (Version None)
Quarter: 2012Q1

REPORT INFORMATION
  Report Type: 
  Country: None (occurrence: None)
  Receive Date: 20120319
  Receipt Date: 20120306
  Transmission Date: 20120608
  Serious: Yes (Other)
  Sender: FDA-Public Use
  Company Number: 2012031581

PATIENT
  Age: 77 Year
  Sex: Female

DRUGS (9)
  1. PREDNISONE TAB [Concomitant]
  2. PRIVIGEN [Suspect]
  3. PRIVIGEN [Suspect]
     Dosage: 40 G 1X/MONTH INTRAVENOUS (NOT OTHERWISE SPECIFIED)
     Route: 042
     Dates: start: 20111209
  4. PRIVIGEN [Suspect]
     Dosage: 40 G 1X/MONTH INTRAVENOUS (NOT OTHERWISE SPECIFIED)
     Route: 042
     Dates: start: 20120206
  5. FOSAMAX [Concomitant]
  6. CALCIUM CARBONATE [Concomitant]
  7. VITAMIN D [Concomitant]
  8. AMLODIPINE [Concomitant]
  9. DAILY MULTIVITAMIN (DAILY MULTIVITAMIN) [Concomitant]

REACTIONS (2)
  - AUTOIMMUNE THROMBOCYTOPENIA [None]
  - OFF LABEL USE [None]
